FAERS Safety Report 19454426 (Version 1)
Quarter: 2021Q2

REPORT INFORMATION
  Report Type: Spontaneous
  Country: NL (occurrence: NL)
  Receive Date: 20210623
  Receipt Date: 20210623
  Transmission Date: 20210717
  Serious: Yes (Life-Threatening, Other)
  Sender: FDA-Public Use
  Company Number: NL-TEVA-2021-NL-1923461

PATIENT
  Age: 65 Year
  Sex: Male
  Weight: 98 kg

DRUGS (5)
  1. TRESIBA [Suspect]
     Active Substance: INSULIN DEGLUDEC
     Indication: DIABETES MELLITUS
     Dosage: 40UH IN THE EVENING:THERAPY END DATE :ASKU
     Dates: start: 202102
  2. METHOTREXAAT INJVLST 2,5MG/ML / EMTHEXATE PF INJVLST 2,5MG/ML FLAC [Suspect]
     Active Substance: METHOTREXATE
     Indication: POLYARTHRITIS
     Dosage: 1 X A WEEK
     Dates: start: 202103, end: 20210502
  3. METFORMINE TABLET   500MG / BRAND NAME NOT SPECIFIED [Concomitant]
     Active Substance: METFORMIN HYDROCHLORIDE
     Dosage: 1000MG IN THE MORNING, 1000MG IN THE EVENINGTHERAPY END DATE :ASKU
     Dates: start: 2016
  4. MITOMYCINE INFUUS / BRAND NAME NOT SPECIFIED [Suspect]
     Active Substance: MITOMYCIN
     Indication: BLADDER CANCER
     Dosage: 11/2, 18/2, 25/2, 4/3, 1/4, 29/4:THERAPY END DATE:ASKU
     Dates: start: 202102
  5. INSULINE ASPART INJVLST 100E/ML / NOVORAPID INJVLST 100E/ML FLACON 10M [Concomitant]
     Dosage: 16UH IN THE MORNING, 20UH IN THE EVENING
     Dates: start: 2018, end: 20210517

REACTIONS (20)
  - Platelet count decreased [Recovered/Resolved]
  - Insomnia [Recovered/Resolved]
  - Hallucination [Recovered/Resolved]
  - Hyperglycaemia [Recovered/Resolved]
  - Pyrexia [Recovered/Resolved]
  - Oropharyngeal pain [Recovered/Resolved]
  - Dyspnoea [Recovered/Resolved]
  - Fatigue [Recovering/Resolving]
  - Anal incontinence [Recovered/Resolved]
  - Disturbance in attention [Recovering/Resolving]
  - Chills [Recovered/Resolved]
  - Cough [Recovered/Resolved]
  - Dry mouth [Recovered/Resolved]
  - Tachycardia [Recovered/Resolved]
  - Decreased appetite [Recovered/Resolved]
  - Parosmia [Recovered/Resolved]
  - Headache [Recovered/Resolved]
  - Myalgia [Recovered/Resolved]
  - Malaise [Recovered/Resolved]
  - Urinary incontinence [Recovered/Resolved]

NARRATIVE: CASE EVENT DATE: 20210505
